FAERS Safety Report 14420921 (Version 1)
Quarter: 2018Q1

REPORT INFORMATION
  Report Type: Spontaneous
  Country: US (occurrence: US)
  Receive Date: 20180122
  Receipt Date: 20180122
  Transmission Date: 20180509
  Serious: No
  Sender: FDA-Public Use
  Company Number: US-ROCHE-2022241

PATIENT
  Age: 70 Year
  Sex: Female
  Weight: 93.07 kg

DRUGS (4)
  1. RITUXAN [Suspect]
     Active Substance: RITUXIMAB
     Indication: RHEUMATOID ARTHRITIS
     Route: 042
     Dates: start: 20171101
  2. BENADRYL [Concomitant]
     Active Substance: DIPHENHYDRAMINE HYDROCHLORIDE
     Dosage: ONGOING; NO
     Route: 065
     Dates: start: 20171101
  3. TYLENOL [Concomitant]
     Active Substance: ACETAMINOPHEN
     Dosage: ONGOING; NO
     Route: 065
     Dates: start: 20171101
  4. SYNTHROID [Concomitant]
     Active Substance: LEVOTHYROXINE SODIUM
     Route: 065

REACTIONS (5)
  - Pain [Not Recovered/Not Resolved]
  - Fatigue [Not Recovered/Not Resolved]
  - Feeling hot [Not Recovered/Not Resolved]
  - Hyperhidrosis [Recovering/Resolving]
  - Chills [Not Recovered/Not Resolved]

NARRATIVE: CASE EVENT DATE: 20171101
